FAERS Safety Report 19693794 (Version 1)
Quarter: 2021Q3

REPORT INFORMATION
  Report Type: Report from Study
  Country: US (occurrence: US)
  Receive Date: 20210812
  Receipt Date: 20210812
  Transmission Date: 20211014
  Serious: Yes (Hospitalization)
  Sender: FDA-Public Use
  Company Number: US-JAZZ-2021-US-014611

PATIENT
  Age: 62 Year
  Sex: Female
  Weight: 75.7 kg

DRUGS (7)
  1. CPX?351 [Suspect]
     Active Substance: CYTARABINE\DAUNORUBICIN
     Indication: HAEMATOLOGICAL MALIGNANCY
     Dosage: 54.23 MILLIGRAM
     Route: 042
     Dates: start: 20210721, end: 20210723
  2. VALACYCLOVIR [Concomitant]
     Active Substance: VALACYCLOVIR HYDROCHLORIDE
     Dosage: 500 MILLIGRAM, BID
     Route: 048
     Dates: start: 20210630
  3. AMBIEN [Concomitant]
     Active Substance: ZOLPIDEM TARTRATE
     Dosage: 5 MILLIGRAM, AT NIGHT
     Route: 048
  4. ZOFRAN [Concomitant]
     Active Substance: ONDANSETRON HYDROCHLORIDE
     Dosage: 8 MILLIGRAM,3X  PRN
     Route: 048
     Dates: start: 20210721
  5. AMLODIPINE [Concomitant]
     Active Substance: AMLODIPINE BESYLATE
     Dosage: 10 MILLIGRAM, QD
     Route: 048
     Dates: start: 20210701
  6. VITAMIN B12 [Concomitant]
     Active Substance: CYANOCOBALAMIN
     Dosage: 100 MICROGRAM, QD
     Route: 048
     Dates: start: 20210701
  7. MIDOSTAURIN [Suspect]
     Active Substance: MIDOSTAURIN
     Indication: HAEMATOLOGICAL MALIGNANCY
     Dosage: 50 MILLIGRAM
     Dates: start: 20210728, end: 20210805

REACTIONS (1)
  - Anaemia [Recovering/Resolving]

NARRATIVE: CASE EVENT DATE: 20210805
